FAERS Safety Report 4305225-1 (Version None)
Quarter: 2004Q1

REPORT INFORMATION
  Report Type: 
  Country: None (occurrence: None)
  Receive Date: 20040226
  Receipt Date: 20000525
  Transmission Date: 20041129
  Serious: Yes (Other)
  Sender: FDA-Public Use
  Company Number: WAES 00052935

PATIENT
  Age: 72 Year
  Sex: Female

DRUGS (8)
  1. FOSAMAX [Concomitant]
  2. ASPIRIN [Concomitant]
  3. LANOXIN [Concomitant]
  4. LEVOXYL [Concomitant]
  5. LOPRESSOR [Concomitant]
  6. RELAFEN [Concomitant]
  7. VIOXX [Suspect]
     Indication: OSTEOARTHRITIS
     Route: 048
     Dates: start: 19991115, end: 20000430
  8. ZOCOR [Concomitant]

REACTIONS (5)
  - BLINDNESS TRANSIENT [None]
  - CARDIOVASCULAR DISORDER [None]
  - ESSENTIAL THROMBOCYTHAEMIA [None]
  - MYELOPROLIFERATIVE DISORDER [None]
  - RETINAL ARTERY EMBOLISM [None]
